FAERS Safety Report 11433187 (Version 1)
Quarter: 2015Q3

REPORT INFORMATION
  Report Type: Spontaneous
  Country: FR (occurrence: FR)
  Receive Date: 20150830
  Receipt Date: 20150830
  Transmission Date: 20151125
  Serious: Yes (Hospitalization, Disabling)
  Sender: FDA-Public Use
  Company Number: FR-AMGEN-FRASP2015087960

PATIENT
  Age: 81 Year
  Sex: Male

DRUGS (15)
  1. CORTANCYL [Suspect]
     Active Substance: PREDNISONE
     Indication: PRODUCT USED FOR UNKNOWN INDICATION
     Dosage: 10 MG, DAILY
     Route: 065
     Dates: start: 2011
  2. ESOMEPRAZOLE [Concomitant]
     Active Substance: ESOMEPRAZOLE
     Dosage: 40 MG, DAILY
  3. METFORMINE [Concomitant]
     Active Substance: METFORMIN HYDROCHLORIDE
     Dosage: 850 MG, 2X/DAY
  4. PREVISCAN                          /00789001/ [Concomitant]
     Active Substance: FLUINDIONE
     Dosage: UNK
  5. LORAZEPAM. [Concomitant]
     Active Substance: LORAZEPAM
     Dosage: 2 MG, DAILY
  6. IXPRIM [Concomitant]
     Active Substance: ACETAMINOPHEN\TRAMADOL HYDROCHLORIDE
     Dosage: 6 DF, DAILY (37.5/325MG)
  7. ENBREL [Suspect]
     Active Substance: ETANERCEPT
     Indication: RHEUMATOID ARTHRITIS
     Dosage: 50 MG, WEEKLY
     Route: 065
     Dates: start: 201309
  8. LANTUS [Concomitant]
     Active Substance: INSULIN GLARGINE
     Dosage: 38 IU, DAILY
  9. MIRTAZAPINE. [Concomitant]
     Active Substance: MIRTAZAPINE
     Dosage: 15 MG, 2X/DAY
  10. XATRAL [Concomitant]
     Active Substance: ALFUZOSIN
     Dosage: 10 MG, DAILY
  11. HUMALOG [Concomitant]
     Active Substance: INSULIN LISPRO
     Dosage: UNK
  12. RAMIPRIL. [Concomitant]
     Active Substance: RAMIPRIL
     Dosage: 10 MG, DAILY
  13. BURINEX [Concomitant]
     Active Substance: BUMETANIDE
     Dosage: 2.5 MG, DAILY
  14. LYRICA [Concomitant]
     Active Substance: PREGABALIN
     Dosage: 100 MG, DAILY
  15. ENBREL [Suspect]
     Active Substance: ETANERCEPT
     Dosage: 50 MG EVERY 10 DAYS
     Route: 065
     Dates: start: 201405, end: 201412

REACTIONS (5)
  - Condition aggravated [Unknown]
  - Acute polyneuropathy [Not Recovered/Not Resolved]
  - Cytomegalovirus colitis [Recovered/Resolved]
  - Cytomegalovirus infection [Recovered/Resolved with Sequelae]
  - Rheumatoid arthritis [Unknown]

NARRATIVE: CASE EVENT DATE: 201409
